FAERS Safety Report 7275129-3 (Version None)
Quarter: 2011Q1

REPORT INFORMATION
  Report Type: 
  Country: None (occurrence: None)
  Receive Date: 20110204
  Receipt Date: 20110124
  Transmission Date: 20110831
  Serious: Yes (Other)
  Sender: FDA-Public Use
  Company Number: PHHY2011US05687

PATIENT
  Sex: Female

DRUGS (5)
  1. OMEPRAZOLE [Concomitant]
  2. VITAMIN B-12 [Concomitant]
  3. CALCIUM [Concomitant]
  4. VITAMIN D [Concomitant]
  5. RECLAST [Suspect]
     Dosage: 5 MG/100ML, ONCE YEARLY
     Route: 042
     Dates: start: 20100714

REACTIONS (5)
  - OSTEOMYELITIS [None]
  - TOOTH ABSCESS [None]
  - TOOTH DISORDER [None]
  - ORAL INFECTION [None]
  - DENTAL CARIES [None]
